FAERS Safety Report 7381568-2 (Version None)
Quarter: 2011Q1

REPORT INFORMATION
  Report Type: 
  Country: None (occurrence: None)
  Receive Date: 20110329
  Receipt Date: 20110318
  Transmission Date: 20110831
  Serious: Yes (Life-Threatening, Hospitalization, Other)
  Sender: FDA-Public Use
  Company Number: CO-PFIZER INC-2011064219

PATIENT
  Age: 11 Year
  Sex: Female

DRUGS (1)
  1. SOMATROPIN [Suspect]
     Dosage: 1.4 MG, 1X/DAY
     Route: 058
     Dates: start: 20060301, end: 20110314

REACTIONS (1)
  - INTRACARDIAC THROMBUS [None]
